FAERS Safety Report 5865077-5 (Version None)
Quarter: 2008Q3

REPORT INFORMATION
  Report Type: 
  Country: None (occurrence: None)
  Receive Date: 20080829
  Receipt Date: 20080822
  Transmission Date: 20090109
  Serious: Yes (Hospitalization)
  Sender: FDA-Public Use
  Company Number: A0731279A

PATIENT
  Age: 67 Year
  Sex: Male
  Weight: 117.3 kg

DRUGS (2)
  1. AVANDIA [Suspect]
     Dosage: 6.5MG PER DAY
     Route: 048
     Dates: start: 20040101, end: 20070501
  2. GLUCOTROL [Concomitant]
     Dates: start: 19870101

REACTIONS (5)
  - ANEURYSM [None]
  - CARDIAC FAILURE CONGESTIVE [None]
  - INJURY [None]
  - MYOCARDIAL INFARCTION [None]
  - PAIN [None]
